FAERS Safety Report 9535389 (Version 1)
Quarter: 2013Q3

REPORT INFORMATION
  Report Type: Spontaneous
  Country: US (occurrence: US)
  Receive Date: 20130918
  Receipt Date: 20130918
  Transmission Date: 20140515
  Serious: Yes (Other)
  Sender: FDA-Public Use
  Company Number: US-TEVA-432819USA

PATIENT
  Sex: Female

DRUGS (1)
  1. LISINOPRIL [Suspect]

REACTIONS (2)
  - Choking [Recovered/Resolved]
  - Cough [Unknown]
